FAERS Safety Report 18607775 (Version 6)
Quarter: 2021Q3

REPORT INFORMATION
  Report Type: Report from Study
  Country: US (occurrence: US)
  Receive Date: 20201211
  Receipt Date: 20210917
  Transmission Date: 20211014
  Serious: Yes (Death, Hospitalization)
  Sender: FDA-Public Use
  Company Number: US-SEATTLE GENETICS-2020SGN05467

PATIENT
  Sex: Female

DRUGS (6)
  1. TUCATINIB [Suspect]
     Active Substance: TUCATINIB
     Dosage: 150 MG, UNK
  2. TUCATINIB [Suspect]
     Active Substance: TUCATINIB
     Dosage: 50 MG, UNK
  3. TUCATINIB [Suspect]
     Active Substance: TUCATINIB
     Indication: BREAST CANCER FEMALE
     Dosage: 50 MG, UNK
     Route: 048
     Dates: start: 20201207
  4. TUCATINIB [Suspect]
     Active Substance: TUCATINIB
     Dosage: 150 MG, UNK
  5. TUCATINIB [Suspect]
     Active Substance: TUCATINIB
     Dosage: 150 MG, UNK
     Dates: start: 20201207
  6. TUCATINIB [Suspect]
     Active Substance: TUCATINIB
     Dosage: 50 MG, UNK

REACTIONS (5)
  - Nausea [Unknown]
  - Malaise [Unknown]
  - Blood pressure abnormal [Unknown]
  - Death [Fatal]
  - Laboratory test abnormal [Unknown]
